FAERS Safety Report 25859556 (Version 1)
Quarter: 2025Q3

REPORT INFORMATION
  Report Type: Spontaneous
  Country: JP (occurrence: JP)
  Receive Date: 20250929
  Receipt Date: 20250929
  Transmission Date: 20251021
  Serious: Yes (Death)
  Sender: MERCK SHARP & DOHME LLC
  Company Number: JP-009507513-2332125

PATIENT
  Age: 69 Year
  Sex: Male
  Weight: 43.1 kg

DRUGS (8)
  1. KEYTRUDA [Suspect]
     Active Substance: PEMBROLIZUMAB
     Indication: Squamous cell carcinoma of lung
     Route: 042
     Dates: start: 20250325, end: 20250423
  2. Gemcitabine for I.V.infusion [Yakult] [Concomitant]
     Route: 042
     Dates: start: 20250325, end: 20250430
  3. Cisplatin for I.V. Infusion [Maruko] [Concomitant]
     Route: 042
     Dates: start: 20250325, end: 20250423
  4. Sodium ferrous citrate Tablets 50 mg [Sawai] [Concomitant]
     Route: 048
  5. Lansoprazole OD Tablets 15 mg [Chemiphar] [Concomitant]
     Route: 048
  6. Amlodipine OD Tablets 5 mg [VTRS] [Concomitant]
     Route: 048
  7. Rosuvastatin OD Tablets 2.5 mg [Nichiiko] [Concomitant]
     Route: 048
     Dates: end: 20250522
  8. LIXIANA OD Tablets 30 mg [Concomitant]
     Route: 048

REACTIONS (1)
  - Immune-mediated myositis [Fatal]

NARRATIVE: CASE EVENT DATE: 20250521
